FAERS Safety Report 4702687-2 (Version None)
Quarter: 2005Q2

REPORT INFORMATION
  Report Type: 
  Country: None (occurrence: None)
  Receive Date: 20050629
  Receipt Date: 20050303
  Transmission Date: 20051028
  Serious: Yes (Hospitalization, Other)
  Sender: FDA-Public Use
  Company Number: US-GLAXOSMITHKLINE-A0548191A

PATIENT
  Age: 41 Year
  Sex: Male
  Weight: 111.8 kg

DRUGS (2)
  1. ZYBAN [Suspect]
     Dosage: 150MG TWICE PER DAY
     Route: 048
     Dates: start: 20050120, end: 20050125
  2. PREDNISONE [Suspect]

REACTIONS (4)
  - ARTHRALGIA [None]
  - ASTHENIA [None]
  - RASH [None]
  - SERUM SICKNESS [None]
